FAERS Safety Report 9651060 (Version 2)
Quarter: 2014Q1

REPORT INFORMATION
  Report Type: Spontaneous
  Country: DK (occurrence: DK)
  Receive Date: 20131029
  Receipt Date: 20140103
  Transmission Date: 20141002
  Serious: Yes (Hospitalization)
  Sender: FDA-Public Use
  Company Number: DK-ROCHE-1294809

PATIENT
  Age: 84 Year
  Sex: Male

DRUGS (3)
  1. AVASTIN [Suspect]
     Indication: COLON CANCER METASTATIC
     Route: 065
     Dates: start: 20130704, end: 20130926
  2. XELODA [Concomitant]
     Indication: COLON CANCER METASTATIC
     Route: 065
     Dates: start: 20130704, end: 20130926
  3. OXALIPLATIN [Concomitant]
     Indication: COLON CANCER METASTATIC
     Dosage: GIVEN 50% OF DOSE
     Route: 065
     Dates: start: 20130704, end: 20130926

REACTIONS (1)
  - Malignant hypertension [Recovered/Resolved]
